FAERS Safety Report 4823998-6 (Version None)
Quarter: 2005Q4

REPORT INFORMATION
  Report Type: 
  Country: None (occurrence: None)
  Receive Date: 20051108
  Receipt Date: 20051101
  Transmission Date: 20060501
  Serious: Yes (Hospitalization, Other)
  Sender: FDA-Public Use
  Company Number: USA0506100726

PATIENT
  Age: 45 Year
  Sex: Female

DRUGS (6)
  1. CYMBALTA [Suspect]
     Indication: DEPRESSION
     Dosage: 60 MG DAY
     Dates: start: 20050331, end: 20050520
  2. PAXIL [Concomitant]
  3. ADVAIR DISKUS 100/50 [Concomitant]
  4. LIPITOR [Concomitant]
  5. NEXIUM [Concomitant]
  6. PRIMIDONE [Concomitant]

REACTIONS (8)
  - ALANINE AMINOTRANSFERASE INCREASED [None]
  - BLOOD ALKALINE PHOSPHATASE INCREASED [None]
  - BLOOD GLUCOSE INCREASED [None]
  - CHEST PAIN [None]
  - DIZZINESS [None]
  - LOSS OF CONSCIOUSNESS [None]
  - MIGRAINE [None]
  - SYNCOPE VASOVAGAL [None]
